FAERS Safety Report 15629531 (Version 1)
Quarter: 2018Q4

REPORT INFORMATION
  Report Type: Spontaneous
  Country: US (occurrence: US)
  Receive Date: 20181117
  Receipt Date: 20181117
  Transmission Date: 20190205
  Serious: No
  Sender: FDA-Public Use
  Company Number: US-CELLTRION INC.-2018US022011

PATIENT

DRUGS (3)
  1. REMICADE [Concomitant]
     Active Substance: INFLIXIMAB
  2. 6-MP [Concomitant]
     Active Substance: MERCAPTOPURINE
  3. INFLECTRA [Suspect]
     Active Substance: INFLIXIMAB-DYYB
     Indication: COLITIS ULCERATIVE
     Dosage: 10 MG/KG, EVERY EIGHT WEEKS
     Route: 042

REACTIONS (2)
  - Cheilitis [Recovered/Resolved]
  - Incorrect dose administered [Unknown]
